FAERS Safety Report 10800948 (Version 2)
Quarter: 2015Q1

REPORT INFORMATION
  Report Type: Spontaneous
  Country: None (occurrence: US)
  Receive Date: 20150216
  Receipt Date: 20150216
  Transmission Date: 20150721
  Serious: No
  Sender: FDA-Public Use
  Company Number: US-ALLERGAN-1420979US

PATIENT
  Sex: Female

DRUGS (2)
  1. RESTASIS [Suspect]
     Active Substance: CYCLOSPORINE
     Indication: DRY EYE
     Dosage: UNK
     Dates: start: 2004
  2. FLAXSEED [Concomitant]
     Active Substance: FLAX SEED
     Indication: INJURY CORNEAL
     Route: 048

REACTIONS (2)
  - Blindness transient [Unknown]
  - Dry eye [Unknown]
